FAERS Safety Report 15392855 (Version 3)
Quarter: 2018Q4

REPORT INFORMATION
  Report Type: Spontaneous
  Country: RU (occurrence: RU)
  Receive Date: 20180917
  Receipt Date: 20181009
  Transmission Date: 20190204
  Serious: Yes (Hospitalization)
  Sender: FDA-Public Use
  Company Number: RU-BAYER-2018-168922

PATIENT
  Age: 44 Year
  Sex: Female
  Weight: 63 kg

DRUGS (1)
  1. MIRENA [Suspect]
     Active Substance: LEVONORGESTREL
     Dosage: 20 MCG/24HR, CONT
     Route: 015
     Dates: start: 20180831

REACTIONS (5)
  - Procedural hypotension [None]
  - Device difficult to use [None]
  - Procedural pain [None]
  - Product quality issue [None]
  - Device defective [None]

NARRATIVE: CASE EVENT DATE: 2018
